FAERS Safety Report 10357849 (Version 1)
Quarter: 2014Q3

REPORT INFORMATION
  Report Type: Spontaneous
  Country: US (occurrence: None)
  Receive Date: 20140730
  Receipt Date: 20140730
  Transmission Date: 20150326
  Serious: Yes (Hospitalization, Congenital Anomaly, Other)
  Sender: FDA-Public Use
  Company Number: 2014AP003725

PATIENT
  Age: 0 Day
  Sex: Male
  Weight: 3 kg

DRUGS (2)
  1. PAROXETINE [Suspect]
     Active Substance: PAROXETINE\PAROXETINE HYDROCHLORIDE
     Route: 064
  2. QUETIAPINE FUMARATE (QUETIAPINE FUMARATE) [Concomitant]
     Active Substance: QUETIAPINE FUMARATE

REACTIONS (4)
  - Maternal drugs affecting foetus [None]
  - Foetal exposure during pregnancy [None]
  - Cleft lip and palate [None]
  - Eyelid ptosis congenital [None]

NARRATIVE: CASE EVENT DATE: 20081124
